FAERS Safety Report 5720173-8 (Version None)
Quarter: 2008Q2

REPORT INFORMATION
  Report Type: 
  Country: None (occurrence: None)
  Receive Date: 20080428
  Receipt Date: 20070510
  Transmission Date: 20081010
  Serious: Yes (Hospitalization)
  Sender: FDA-Public Use
  Company Number: US-AMGEN-US221111

PATIENT
  Sex: Male

DRUGS (21)
  1. SENSIPAR [Suspect]
     Indication: HYPERPARATHYROIDISM SECONDARY
     Route: 048
     Dates: start: 20070127, end: 20070417
  2. LACTULOSE [Concomitant]
     Dates: start: 20061219
  3. PERCOCET [Concomitant]
     Dates: start: 20061109
  4. BENADRYL [Concomitant]
     Dates: start: 20061109
  5. EPOGEN [Concomitant]
  6. LORAZEPAM [Concomitant]
     Dates: start: 20061109
  7. CELEXA [Concomitant]
     Dates: start: 20061219
  8. ZEMPLAR [Concomitant]
     Dates: start: 20070315, end: 20070413
  9. VENOFER [Concomitant]
     Dates: start: 20061226
  10. BENTYL [Concomitant]
     Route: 048
     Dates: start: 20061219
  11. CARDIZEM [Concomitant]
     Route: 048
     Dates: start: 20061219
  12. CATAPRES [Concomitant]
     Route: 048
     Dates: start: 20061128
  13. DOCUSATE SODIUM [Concomitant]
     Route: 048
     Dates: start: 20061109
  14. FUROSEMIDE [Concomitant]
     Route: 048
     Dates: start: 20061109
  15. GEODON [Concomitant]
     Route: 048
     Dates: start: 20061219
  16. LEVSIN [Concomitant]
     Route: 048
     Dates: start: 20061219
  17. MINOXIDIL [Concomitant]
     Route: 048
     Dates: start: 20070301
  18. PRILOSEC [Concomitant]
     Route: 048
     Dates: start: 20061114
  19. REGLAN [Concomitant]
     Route: 048
     Dates: start: 20061212
  20. RENAGEL [Concomitant]
     Route: 048
     Dates: start: 20061109
  21. ZETIA [Concomitant]
     Route: 048
     Dates: start: 20061114

REACTIONS (3)
  - CONVULSION [None]
  - DIZZINESS [None]
  - TREMOR [None]
